FAERS Safety Report 21151692 (Version 5)
Quarter: 2025Q3

REPORT INFORMATION
  Report Type: Report from Study
  Country: CA (occurrence: CA)
  Receive Date: 20220730
  Receipt Date: 20250831
  Transmission Date: 20251020
  Serious: Yes (Other)
  Sender: HLS THERAPEUTICS
  Company Number: CA-HLS-202201447

PATIENT
  Age: 75 Year
  Sex: Female

DRUGS (1)
  1. CLOZARIL [Suspect]
     Active Substance: CLOZAPINE
     Indication: Product used for unknown indication
     Route: 048
     Dates: start: 20070206, end: 20250819

REACTIONS (3)
  - Neutropenia [Recovered/Resolved]
  - Dialysis [Unknown]
  - Leukopenia [Unknown]

NARRATIVE: CASE EVENT DATE: 20220728
